FAERS Safety Report 14994477 (Version 1)
Quarter: 2018Q2

REPORT INFORMATION
  Report Type: Spontaneous
  Country: US (occurrence: US)
  Receive Date: 20180521
  Receipt Date: 20180521
  Transmission Date: 20180711
  Serious: Yes (Disabling)
  Sender: FDA-Public Use
  Company Number: None

PATIENT
  Age: 30 Year
  Sex: Male

DRUGS (1)
  1. MOXIFLOXACIN. [Suspect]
     Active Substance: MOXIFLOXACIN
     Indication: URETHRITIS MYCOPLASMAL
     Route: 048

REACTIONS (2)
  - Tendonitis [None]
  - Thermohyperaesthesia [None]

NARRATIVE: CASE EVENT DATE: 20180418
